FAERS Safety Report 6869834-8 (Version None)
Quarter: 2010Q3

REPORT INFORMATION
  Report Type: 
  Country: None (occurrence: None)
  Receive Date: 20100722
  Receipt Date: 20081017
  Transmission Date: 20110219
  Serious: No
  Sender: FDA-Public Use
  Company Number: US-PFIZER INC-2008074542

PATIENT
  Sex: Male
  Weight: 84.09 kg

DRUGS (1)
  1. CHANTIX [Suspect]
     Indication: SMOKING CESSATION THERAPY
     Dates: start: 20080725, end: 20080801

REACTIONS (3)
  - ANGER [None]
  - DEPRESSION [None]
  - NAUSEA [None]
